FAERS Safety Report 7526197-2 (Version None)
Quarter: 2011Q2

REPORT INFORMATION
  Report Type: 
  Country: None (occurrence: None)
  Receive Date: 20110606
  Receipt Date: 20101007
  Transmission Date: 20111010
  Serious: No
  Sender: FDA-Public Use
  Company Number: US-BRISTOL-MYERS SQUIBB COMPANY-15326200

PATIENT
  Age: 49 Year
  Sex: Male

DRUGS (2)
  1. SUSTIVA [Suspect]
     Route: 048
  2. ATRIPLA [Concomitant]

REACTIONS (1)
  - DRUG SCREEN FALSE POSITIVE [None]
